FAERS Safety Report 15978941 (Version 3)
Quarter: 2019Q1

REPORT INFORMATION
  Report Type: Report from Study
  Country: ES (occurrence: ES)
  Receive Date: 20190219
  Receipt Date: 20190327
  Transmission Date: 20190418
  Serious: Yes (Hospitalization)
  Sender: FDA-Public Use
  Company Number: ES-ROCHE-2264859

PATIENT
  Age: 35 Year
  Sex: Male
  Weight: 77 kg

DRUGS (16)
  1. ALPRAZOLAM. [Concomitant]
     Active Substance: ALPRAZOLAM
     Indication: ANXIETY
     Route: 065
     Dates: start: 20121210
  2. PLASMALYTE [Concomitant]
     Active Substance: ELECTROLYTES NOS
     Route: 065
     Dates: start: 20190208, end: 20190208
  3. METHYLPREDNISOLONE. [Concomitant]
     Active Substance: METHYLPREDNISOLONE
     Indication: MULTIPLE SCLEROSIS RELAPSE
     Dosage: 25/MAR/2013 (BASELINE (WEEK 1)), 08/APR/2013 (WEEK 2), 09/SEP/2013 (WEEK 24), 26/FEB/2014 (WEEK 48),
     Route: 065
  4. NORADRENALINE [Concomitant]
     Active Substance: NOREPINEPHRINE
     Dosage: 12.00 ML/H
     Route: 065
     Dates: start: 20190208, end: 20190209
  5. OCRELIZUMAB. [Suspect]
     Active Substance: OCRELIZUMAB
     Dosage: 12/AUG/2015 (OLE-WEEK 24), 25/JAN/2016 (OLE-WEEK 48), 11/JUL/2016 (OLE-WEEK 72), 29/DEC/2016 (OLE-WE
     Route: 042
  6. POLARAMINE [Concomitant]
     Active Substance: DEXCHLORPHENIRAMINE MALEATE
     Dosage: 09/MAR/2015 (OLE-WEEK 2), 29/DEC/2016 (OLE-WEEK 96), 19/JUN/2017 (OLE-WEEK 120), 15/OCT/2018 (OLE-WE
     Route: 065
  7. VITAMIN K [Concomitant]
     Active Substance: PHYTONADIONE
     Indication: HYPOCOAGULABLE STATE
     Route: 065
     Dates: start: 20190209, end: 20190209
  8. DEXCHLORPHENIRAMINE [Concomitant]
     Active Substance: DEXCHLORPHENIRAMINE
     Dosage: 08/APR/2013 (WEEK 2), 09SEP2013 (WEEK 24), 26/FEB/2014 (WEEK 48),23/FEB/2015 (OLE-WEEK 0), 12/AUG/20
     Route: 065
  9. METHYLPREDNISOLONE. [Concomitant]
     Active Substance: METHYLPREDNISOLONE
     Route: 065
     Dates: start: 20121010, end: 20121012
  10. DEXCHLORPHENIRAMINE [Concomitant]
     Active Substance: DEXCHLORPHENIRAMINE
     Route: 065
     Dates: start: 20130325, end: 20130325
  11. ALPRAZOLAM. [Concomitant]
     Active Substance: ALPRAZOLAM
     Route: 065
     Dates: start: 20141103
  12. OCRELIZUMAB. [Suspect]
     Active Substance: OCRELIZUMAB
     Dosage: 09/SEP/2013 (WEEK 24), 26/FEB/2014 (WEEK 48), 18/AUG/2014 (WEEK 72)
     Route: 042
  13. PLACEBO [Suspect]
     Active Substance: UNSPECIFIED INGREDIENT
     Indication: RELAPSING-REMITTING MULTIPLE SCLEROSIS
     Dosage: 26/JAN/2015, 20/FEB/2015
     Route: 058
     Dates: start: 20130325
  14. OCRELIZUMAB. [Suspect]
     Active Substance: OCRELIZUMAB
     Indication: RELAPSING-REMITTING MULTIPLE SCLEROSIS
     Dosage: 23/FEB/2015 (OLE-WEEK 0), 09/MAR/2015 (OLE-WEEK 2), ?300 MG INFUSIONS ON DAYS 1 AND 15 FOR THE FIRST
     Route: 042
  15. GABAPENTINE [Concomitant]
     Active Substance: GABAPENTIN
     Indication: ARTHRALGIA
     Route: 065
     Dates: start: 20171220
  16. OCRELIZUMAB. [Suspect]
     Active Substance: OCRELIZUMAB
     Indication: RELAPSING-REMITTING MULTIPLE SCLEROSIS
     Dosage: ON DAYS 1 AND 15 FOR THE FIRST DOSE AND AS A SINGLE INFUSION FOR ALL SUBSEQUENT INFUSIONS EVERY 24 W
     Route: 042
     Dates: start: 20130325

REACTIONS (1)
  - Septic shock [Recovered/Resolved]

NARRATIVE: CASE EVENT DATE: 20190207
